FAERS Safety Report 4871833-2 (Version None)
Quarter: 2006Q1

REPORT INFORMATION
  Report Type: 
  Country: None (occurrence: None)
  Receive Date: 20060104
  Receipt Date: 20051005
  Transmission Date: 20060701
  Serious: Yes (Death, Hospitalization)
  Sender: FDA-Public Use
  Company Number: US-MERCK-0510USA04128

PATIENT
  Age: 69 Year
  Sex: Male
  Weight: 95 kg

DRUGS (8)
  1. VIOXX [Suspect]
     Indication: RHEUMATOID ARTHRITIS
     Route: 048
     Dates: start: 20011201, end: 20031201
  2. PLAQUENIL [Concomitant]
     Route: 065
  3. ARAVA [Concomitant]
     Route: 065
  4. SINEMET [Concomitant]
     Route: 065
  5. MEVACOR [Concomitant]
     Route: 065
  6. TOPROL-XL [Concomitant]
     Route: 065
  7. COMBIVENT [Concomitant]
     Route: 065
  8. ADVAIR DISKUS 250/50 [Concomitant]
     Route: 065

REACTIONS (9)
  - ARRHYTHMIA [None]
  - ARTHROPATHY [None]
  - ATELECTASIS [None]
  - BLOOD PH DECREASED [None]
  - BRONCHITIS [None]
  - CATARACT [None]
  - INTESTINAL FUNCTIONAL DISORDER [None]
  - PNEUMONIA PNEUMOCOCCAL [None]
  - RESPIRATORY FAILURE [None]
